FAERS Safety Report 13890608 (Version 2)
Quarter: 2017Q4

REPORT INFORMATION
  Report Type: Spontaneous
  Country: US (occurrence: US)
  Receive Date: 20170822
  Receipt Date: 20171004
  Transmission Date: 20180320
  Serious: No
  Sender: FDA-Public Use
  Company Number: US-ELI_LILLY_AND_COMPANY-US201708007989

PATIENT
  Age: 68 Year
  Sex: Female

DRUGS (2)
  1. LANTUS [Concomitant]
     Active Substance: INSULIN GLARGINE
     Indication: TYPE 2 DIABETES MELLITUS
     Dosage: 19 U, DAILY, AT NIGHT
  2. HUMALOG [Suspect]
     Active Substance: INSULIN LISPRO
     Indication: TYPE 2 DIABETES MELLITUS
     Dosage: 2-3 UNITS, 1-2 TIMES
     Route: 058
     Dates: start: 20170817

REACTIONS (2)
  - Blood glucose increased [Recovering/Resolving]
  - Drug dose omission [Recovering/Resolving]

NARRATIVE: CASE EVENT DATE: 20170817
